FAERS Safety Report 8432276 (Version 4)
Quarter: 2012Q4

REPORT INFORMATION
  Report Type: 
  Country: US (occurrence: US)
  Receive Date: 20120229
  Receipt Date: 20121107
  Transmission Date: 20130627
  Serious: Yes (Hospitalization, Other)
  Sender: FDA-Public Use
  Company Number: US-PFIZER INC-2012052342

PATIENT
  Age: 40 Year
  Sex: Male

DRUGS (2)
  1. CHANTIX [Suspect]
     Indication: SMOKING CESSATION THERAPY
     Dosage: starter pack and continuing monthly pack
     Route: 048
     Dates: start: 20090521, end: 20090721
  2. VICODIN [Concomitant]
     Indication: BACK PAIN
     Dosage: UNK
     Dates: start: 2002

REACTIONS (2)
  - Suicidal ideation [Recovered/Resolved]
  - Aggression [Recovered/Resolved]
